FAERS Safety Report 7539950-6 (Version None)
Quarter: 2011Q2

REPORT INFORMATION
  Report Type: 
  Country: None (occurrence: None)
  Receive Date: 20110610
  Receipt Date: 20110608
  Transmission Date: 20111010
  Serious: Yes (Death)
  Sender: FDA-Public Use
  Company Number: DE-SANOFI-AVENTIS-2011SA036246

PATIENT

DRUGS (10)
  1. ENOXAPARIN SODIUM [Suspect]
  2. ENOXAPARIN SODIUM [Suspect]
  3. ENOXAPARIN SODIUM [Suspect]
  4. ENOXAPARIN SODIUM [Suspect]
  5. ENOXAPARIN SODIUM [Suspect]
  6. ENOXAPARIN SODIUM [Suspect]
     Indication: DEEP VEIN THROMBOSIS
  7. ENOXAPARIN SODIUM [Suspect]
  8. ENOXAPARIN SODIUM [Suspect]
  9. ENOXAPARIN SODIUM [Suspect]
  10. ENOXAPARIN SODIUM [Suspect]

REACTIONS (1)
  - PULMONARY EMBOLISM [None]
